FAERS Safety Report 22218767 (Version 1)
Quarter: 2023Q2

REPORT INFORMATION
  Report Type: Spontaneous
  Country: US (occurrence: US)
  Receive Date: 20230417
  Receipt Date: 20230417
  Transmission Date: 20230722
  Serious: Yes (Disabling)
  Sender: FDA-Public Use
  Company Number: US-JNJFOC-20230428369

PATIENT
  Sex: Female

DRUGS (1)
  1. INVOKANA [Suspect]
     Active Substance: CANAGLIFLOZIN
     Indication: Type 2 diabetes mellitus
     Dosage: 100 MG, TAKE 1 TABLET ONCE DAILY BEFORE BREAKFAST
     Route: 048

REACTIONS (2)
  - Leg amputation [Unknown]
  - Glomerular filtration rate decreased [Unknown]
